FAERS Safety Report 4498284-7 (Version None)
Quarter: 2004Q3

REPORT INFORMATION
  Report Type: 
  Country: None (occurrence: None)
  Receive Date: 20040927
  Receipt Date: 20040611
  Transmission Date: 20050211
  Serious: No
  Sender: FDA-Public Use
  Company Number: USA040669994

PATIENT
  Age: 7 Year
  Sex: Male
  Weight: 17 kg

DRUGS (3)
  1. STRATTERA [Suspect]
     Indication: ATTENTION DEFICIT/HYPERACTIVITY DISORDER
     Dosage: 10 MG/1 DAY
     Dates: start: 20040609
  2. LEXAPRO [Concomitant]
  3. CONCERTA [Concomitant]

REACTIONS (2)
  - ABNORMAL BEHAVIOUR [None]
  - CRYING [None]
